FAERS Safety Report 8109808-2 (Version None)
Quarter: 2012Q1

REPORT INFORMATION
  Report Type: 
  Country: None (occurrence: None)
  Receive Date: 20120202
  Receipt Date: 20120119
  Transmission Date: 20120608
  Serious: No
  Sender: FDA-Public Use
  Company Number: US-AMGEN-USASP2012004060

PATIENT
  Age: 71 Year
  Sex: Female

DRUGS (1)
  1. ENBREL [Suspect]
     Indication: RHEUMATOID ARTHRITIS
     Dosage: 50 MG, QWK
     Dates: start: 20100101, end: 20120106

REACTIONS (6)
  - JOINT INSTABILITY [None]
  - ARTHRALGIA [None]
  - FALL [None]
  - PARATHYROID TUMOUR BENIGN [None]
  - DIABETES MELLITUS [None]
  - HYPERPARATHYROIDISM [None]
